FAERS Safety Report 4628334-6 (Version None)
Quarter: 2005Q2

REPORT INFORMATION
  Report Type: 
  Country: None (occurrence: None)
  Receive Date: 20050401
  Receipt Date: 20050321
  Transmission Date: 20051028
  Serious: Yes (Death)
  Sender: FDA-Public Use
  Company Number: US014755

PATIENT
  Age: 46 Year
  Sex: Female

DRUGS (1)
  1. ACTIQ [Suspect]
     Indication: MIGRAINE
     Dosage: 600 UG BUCCAL
     Route: 002
     Dates: start: 20050101

REACTIONS (1)
  - MIGRAINE [None]
